FAERS Safety Report 12352408 (Version 1)
Quarter: 2016Q2

REPORT INFORMATION
  Report Type: Spontaneous
  Country: US (occurrence: US)
  Receive Date: 20160510
  Receipt Date: 20160510
  Transmission Date: 20160815
  Serious: No
  Sender: FDA-Public Use
  Company Number: US-PFIZER INC-2016215004

PATIENT
  Age: 41 Year
  Sex: Female
  Weight: 82.86 kg

DRUGS (9)
  1. ORPHENADRINE [Concomitant]
     Active Substance: ORPHENADRINE
     Dosage: UNK, 5%
  2. VENLAFAXINE HCL [Concomitant]
     Active Substance: VENLAFAXINE HYDROCHLORIDE
     Dosage: 75 MG, 2X/DAY, (AFTER 1 WK)
  3. NABUMETONE. [Concomitant]
     Active Substance: NABUMETONE
     Dosage: UNK, 5%
  4. KETAMINE [Concomitant]
     Active Substance: KETAMINE
     Dosage: UNK, (10%)
  5. DOXEPIN [Concomitant]
     Active Substance: DOXEPIN
     Dosage: UNK, 5%
  6. BUPIVACAINE. [Concomitant]
     Active Substance: BUPIVACAINE
     Dosage: UNK, 3X/DAY, 2%
  7. LYRICA [Suspect]
     Active Substance: PREGABALIN
     Dosage: 150 MG, 2X/DAY
     Route: 048
  8. VENLAFAXINE HCL [Concomitant]
     Active Substance: VENLAFAXINE HYDROCHLORIDE
     Dosage: 75 MG, 1X/DAY
  9. GABAPENTIN. [Concomitant]
     Active Substance: GABAPENTIN
     Dosage: UNK, 6%

REACTIONS (4)
  - Pain in extremity [Unknown]
  - Back pain [Unknown]
  - Tooth infection [Unknown]
  - Sciatica [Unknown]
